FAERS Safety Report 8816604 (Version 4)
Quarter: 2013Q1

REPORT INFORMATION
  Report Type: Spontaneous
  Country: JP (occurrence: None)
  Receive Date: 20120928
  Receipt Date: 20121211
  Transmission Date: 20140127
  Serious: Yes (Hospitalization)
  Sender: FDA-Public Use
  Company Number: TPA2012A07008

PATIENT
  Age: 64 Year
  Sex: Female

DRUGS (9)
  1. FEBURIC [Suspect]
     Indication: HYPERURICAEMIA
     Route: 048
     Dates: start: 20120828, end: 20120828
  2. CEVIMELINE HYDROCHLORIDE [Concomitant]
  3. ALFAROL (ALFACALCIDOL) [Concomitant]
  4. LENDORMIN D [Concomitant]
  5. NU-LOTAN [Concomitant]
  6. MOHRUS [Concomitant]
  7. LASIX (FUROSEMIDE) [Concomitant]
  8. PREDONINE [Concomitant]
  9. PLAVIX [Concomitant]

REACTIONS (4)
  - Pyrexia [None]
  - Generalised erythema [None]
  - Lymphocyte stimulation test positive [None]
  - Pruritus generalised [None]
